FAERS Safety Report 4314957-0 (Version None)
Quarter: 2004Q1

REPORT INFORMATION
  Report Type: 
  Country: None (occurrence: None)
  Receive Date: 20040309
  Receipt Date: 20040224
  Transmission Date: 20041129
  Serious: Yes (Hospitalization)
  Sender: FDA-Public Use
  Company Number: US-JNJFOC-20040206004

PATIENT
  Age: 73 Year
  Sex: Female

DRUGS (8)
  1. INFLIXIMAB (INFLIXIMAB, RECOMBINANT) LYOPHILIZED POWDER [Suspect]
     Indication: RHEUMATOID ARTHRITIS
     Dosage: INTRAVENOUS
     Route: 042
     Dates: start: 20010228, end: 20011201
  2. VALIUM [Concomitant]
  3. CARBATROL [Concomitant]
  4. ZANTAC [Concomitant]
  5. SYNTHROID [Concomitant]
  6. OSCAL PLUS D (CALCIUM D3 ^STADA^) [Concomitant]
  7. MAGNESIUM (MAGNESIUM) [Concomitant]
  8. GLUCOSAMINE/CHONDROITIN (GLUCOSAMINE W/CHONDROITIN SULFATES) [Concomitant]

REACTIONS (1)
  - URINARY BLADDER HAEMORRHAGE [None]
